FAERS Safety Report 6040508-9 (Version None)
Quarter: 2009Q1

REPORT INFORMATION
  Report Type: 
  Country: None (occurrence: None)
  Receive Date: 20090116
  Receipt Date: 20080326
  Transmission Date: 20090719
  Serious: No
  Sender: FDA-Public Use
  Company Number: US-BRISTOL-MYERS SQUIBB COMPANY-14127203

PATIENT
  Age: 37 Year
  Sex: Male

DRUGS (3)
  1. ABILIFY [Suspect]
     Dosage: TAKEN FOR 2 DAYS.
  2. GLYBURIDE [Concomitant]
  3. ZOLOFT [Concomitant]

REACTIONS (2)
  - POLYP [None]
  - RECTAL HAEMORRHAGE [None]
